FAERS Safety Report 7475453-5 (Version None)
Quarter: 2011Q2

REPORT INFORMATION
  Report Type: 
  Country: None (occurrence: None)
  Receive Date: 20110512
  Receipt Date: 20110509
  Transmission Date: 20111010
  Serious: Yes (Hospitalization, Other)
  Sender: FDA-Public Use
  Company Number: US-TEVA-281013USA

PATIENT
  Age: 26 Week
  Sex: Male

DRUGS (1)
  1. METHOTREXATE [Suspect]
     Route: 064

REACTIONS (7)
  - CONGENITAL RENAL DISORDER [None]
  - FALLOT'S TETRALOGY [None]
  - MATERNAL DRUGS AFFECTING FOETUS [None]
  - MICROGNATHIA [None]
  - TALIPES [None]
  - MULTIPLE CONGENITAL ABNORMALITIES [None]
  - POLYDACTYLY [None]
